FAERS Safety Report 25410983 (Version 1)
Quarter: 2025Q2

REPORT INFORMATION
  Report Type: Spontaneous
  Country: BR (occurrence: BR)
  Receive Date: 20250609
  Receipt Date: 20250609
  Transmission Date: 20250716
  Serious: Yes (Other)
  Sender: EXELA PHARMA SCIENCES
  Company Number: BR-EXELAPHARMA-2025EXLA00102

PATIENT
  Age: 44 Year
  Sex: Male

DRUGS (1)
  1. GANCICLOVIR [Suspect]
     Active Substance: GANCICLOVIR
     Indication: Cytomegalovirus viraemia

REACTIONS (5)
  - Cardiogenic shock [Recovering/Resolving]
  - Ventricular dysfunction [Recovering/Resolving]
  - Eosinophilia [Unknown]
  - Eosinophilic myocarditis [Unknown]
  - Drug reaction with eosinophilia and systemic symptoms [Unknown]
